FAERS Safety Report 17095142 (Version 2)
Quarter: 2019Q4

REPORT INFORMATION
  Report Type: Spontaneous
  Country: DE (occurrence: DE)
  Receive Date: 20191130
  Receipt Date: 20191213
  Transmission Date: 20200122
  Serious: Yes (Hospitalization, Other)
  Sender: FDA-Public Use
  Company Number: DE-TEVA-2019-DE-1143169

PATIENT
  Age: 58 Year
  Sex: Male
  Weight: 92 kg

DRUGS (2)
  1. LEVOFLOXACIN 500 MG [Suspect]
     Active Substance: LEVOFLOXACIN
     Indication: INFLUENZA
  2. LEVOFLOXACIN 500 MG [Suspect]
     Active Substance: LEVOFLOXACIN
     Indication: UPPER RESPIRATORY TRACT INFECTION
     Dosage: 500 MILLIGRAM DAILY; 1-0-0
     Dates: start: 20161125

REACTIONS (16)
  - Facial paralysis [Recovered/Resolved]
  - Quadriparesis [Recovered/Resolved]
  - Guillain-Barre syndrome [Unknown]
  - Ataxia [Not Recovered/Not Resolved]
  - Myalgia [Unknown]
  - Paraesthesia [Unknown]
  - Hypoaesthesia [Not Recovered/Not Resolved]
  - Orthostatic intolerance [Unknown]
  - Sensory level abnormal [Unknown]
  - Asthenia [Unknown]
  - Loss of consciousness [Recovered/Resolved]
  - Paraesthesia [Not Recovered/Not Resolved]
  - Decreased vibratory sense [Not Recovered/Not Resolved]
  - Autonomic nervous system imbalance [Unknown]
  - Sleep disorder [Unknown]
  - Balance disorder [Not Recovered/Not Resolved]

NARRATIVE: CASE EVENT DATE: 20161130
